FAERS Safety Report 4422315-3 (Version None)
Quarter: 2004Q3

REPORT INFORMATION
  Report Type: 
  Country: None (occurrence: None)
  Receive Date: 20040810
  Receipt Date: 20020108
  Transmission Date: 20050211
  Serious: Yes (Other)
  Sender: FDA-Public Use
  Company Number: JP-GLAXOSMITHKLINE-B0131663B

PATIENT
  Sex: Female
  Weight: 3.3 kg

DRUGS (7)
  1. ZANTAC [Suspect]
     Indication: ASPIRATION
     Dosage: 5MG PER DAY
     Dates: start: 20011211, end: 20011211
  2. CEFMETAZOLE SODIUM [Concomitant]
     Dates: start: 20011211
  3. GENERAL ANESTHESIA [Concomitant]
     Dates: start: 20011211
  4. EPHEDRINE [Concomitant]
     Dosage: 20MG PER DAY
     Dates: start: 20011211, end: 20011211
  5. EPINEPHRINE [Concomitant]
     Dosage: 2UNIT PER DAY
     Dates: start: 20011211, end: 20011211
  6. HYDROCORTISONE SODIUM SUCCINATE [Concomitant]
     Dosage: 300MG PER DAY
     Dates: start: 20011211, end: 20011211
  7. OXYGEN [Concomitant]
     Dates: start: 20011211

REACTIONS (6)
  - ASPHYXIA [None]
  - CARDIAC OUTPUT DECREASED [None]
  - CEREBRAL PALSY [None]
  - CONVULSION [None]
  - DEVELOPMENTAL DELAY [None]
  - HYPOXIC ENCEPHALOPATHY [None]
